FAERS Safety Report 21775005 (Version 1)
Quarter: 2022Q4

REPORT INFORMATION
  Report Type: Spontaneous
  Country: NL (occurrence: NL)
  Receive Date: 20221225
  Receipt Date: 20221225
  Transmission Date: 20230113
  Serious: Yes (Death)
  Sender: FDA-Public Use
  Company Number: NL-LRB-00854022

PATIENT
  Sex: Male
  Weight: 61 kg

DRUGS (1)
  1. GABAPENTIN [Suspect]
     Active Substance: GABAPENTIN
     Indication: Trigeminal neuralgia
     Dosage: 300 MILLIGRAM, 3 TIMES A DAY (BUILD-UP: UP TO 3DD 300MG))
     Route: 065
     Dates: start: 20221109, end: 20221114

REACTIONS (3)
  - Ataxia [Fatal]
  - Condition aggravated [Fatal]
  - Somnolence [Fatal]
